FAERS Safety Report 8597495-9 (Version None)
Quarter: 2012Q3

REPORT INFORMATION
  Report Type: 
  Country: None (occurrence: None)
  Receive Date: 20120816
  Receipt Date: 20120809
  Transmission Date: 20120928
  Serious: Yes (Life-Threatening, Hospitalization)
  Sender: FDA-Public Use
  Company Number: US-SANOFI-AVENTIS-2012SA057148

PATIENT
  Sex: Female

DRUGS (2)
  1. HUMALOG [Concomitant]
  2. LANTUS [Suspect]
     Route: 058

REACTIONS (3)
  - BLOOD GLUCOSE INCREASED [None]
  - RESPIRATORY DISTRESS [None]
  - COMA [None]
